FAERS Safety Report 6521642-3 (Version None)
Quarter: 2009Q4

REPORT INFORMATION
  Report Type: 
  Country: None (occurrence: None)
  Receive Date: 20091230
  Receipt Date: 20091218
  Transmission Date: 20100525
  Serious: Yes (Hospitalization)
  Sender: FDA-Public Use
  Company Number: PHHY2009DK57389

PATIENT
  Sex: Male

DRUGS (1)
  1. RASILEZ [Suspect]

REACTIONS (4)
  - BLOOD PRESSURE DECREASED [None]
  - CARDIAC DISORDER [None]
  - HEART RATE DECREASED [None]
  - OEDEMA [None]
